FAERS Safety Report 9056245 (Version 2)
Quarter: 2013Q3

REPORT INFORMATION
  Report Type: Spontaneous
  Country: PL (occurrence: PL)
  Receive Date: 20130205
  Receipt Date: 20130717
  Transmission Date: 20140515
  Serious: Yes (Life-Threatening)
  Sender: FDA-Public Use
  Company Number: PL-PFIZER INC-2013043997

PATIENT
  Age: 69 Year
  Sex: Female
  Weight: 69 kg

DRUGS (4)
  1. CARBOPLATIN [Suspect]
     Indication: LUNG NEOPLASM MALIGNANT
     Dosage: 54.8 MG, 1X/DAY
     Route: 042
     Dates: start: 20121217, end: 20121217
  2. ETOPOSIDE [Suspect]
     Indication: LUNG NEOPLASM MALIGNANT
     Dosage: 177 MG, 1X/DAY
     Route: 042
     Dates: start: 20121217
  3. ETOPOSIDE [Suspect]
     Dosage: 177 MG, 1X/DAY
     Route: 042
     Dates: start: 20121218
  4. ETOPOSIDE [Suspect]
     Dosage: 177 MG, 1X/DAY
     Route: 042
     Dates: start: 20121219

REACTIONS (1)
  - Leukopenia [Unknown]
